FAERS Safety Report 6141639-5 (Version None)
Quarter: 2009Q2

REPORT INFORMATION
  Report Type: 
  Country: None (occurrence: None)
  Receive Date: 20090402
  Receipt Date: 20090325
  Transmission Date: 20091009
  Serious: Yes (Hospitalization)
  Sender: FDA-Public Use
  Company Number: B0567268B

PATIENT
  Sex: Male

DRUGS (3)
  1. TOPOTECAN [Suspect]
     Indication: NEUROBLASTOMA RECURRENT
     Route: 042
     Dates: start: 20080311
  2. VINCRISTINE [Suspect]
     Indication: NEUROBLASTOMA RECURRENT
     Route: 042
     Dates: start: 20080311
  3. DOXORUBICIN HCL [Suspect]
     Indication: NEUROBLASTOMA RECURRENT
     Route: 042
     Dates: start: 20080311

REACTIONS (1)
  - FEBRILE BONE MARROW APLASIA [None]
